FAERS Safety Report 22216226 (Version 2)
Quarter: 2023Q2

REPORT INFORMATION
  Report Type: Spontaneous
  Country: CA (occurrence: CA)
  Receive Date: 20230417
  Receipt Date: 20230616
  Transmission Date: 20230722
  Serious: Yes (Other)
  Sender: FDA-Public Use
  Company Number: CA-SA-SAC20230410000201

PATIENT
  Sex: Male

DRUGS (1)
  1. DUPILUMAB [Suspect]
     Active Substance: DUPILUMAB
     Dosage: UNK

REACTIONS (12)
  - Multiple fractures [Unknown]
  - Ligament injury [Not Recovered/Not Resolved]
  - Tenosynovitis [Unknown]
  - Arthritis [Unknown]
  - Osteoarthritis [Not Recovered/Not Resolved]
  - Spinal osteoarthritis [Not Recovered/Not Resolved]
  - Visual impairment [Unknown]
  - Tendonitis [Unknown]
  - Tendon injury [Not Recovered/Not Resolved]
  - Finger deformity [Not Recovered/Not Resolved]
  - Joint dislocation [Unknown]
  - Hand fracture [Unknown]
